FAERS Safety Report 18069188 (Version 4)
Quarter: 2020Q4

REPORT INFORMATION
  Report Type: Report from Study
  Country: US (occurrence: US)
  Receive Date: 20200725
  Receipt Date: 20201126
  Transmission Date: 20210113
  Serious: Yes (Hospitalization)
  Sender: FDA-Public Use
  Company Number: NVSC2020US204608

PATIENT
  Sex: Male

DRUGS (2)
  1. ENTRESTO [Suspect]
     Active Substance: SACUBITRIL\VALSARTAN
     Dosage: 100 MG, BID
     Route: 048
     Dates: start: 202002
  2. ENTRESTO [Suspect]
     Active Substance: SACUBITRIL\VALSARTAN
     Indication: CARDIAC FAILURE
     Dosage: 100 MG, BID (49/51)
     Route: 048
     Dates: start: 202002

REACTIONS (10)
  - Hypotension [Unknown]
  - Stress [Unknown]
  - Sleep disorder [Unknown]
  - Hypoaesthesia [Unknown]
  - Fatigue [Unknown]
  - Asthenia [Unknown]
  - Hernia [Unknown]
  - Blood potassium increased [Unknown]
  - Nausea [Unknown]
  - Heart rate decreased [Unknown]
